FAERS Safety Report 6880642-4 (Version None)
Quarter: 2010Q3

REPORT INFORMATION
  Report Type: 
  Country: None (occurrence: None)
  Receive Date: 20100727
  Receipt Date: 20100519
  Transmission Date: 20110219
  Serious: No
  Sender: FDA-Public Use
  Company Number: A0860427A

PATIENT
  Age: 55 Year
  Sex: Male

DRUGS (2)
  1. ZANTAC [Suspect]
     Dosage: 300MG TWICE PER DAY
     Route: 048
  2. PLAVIX [Concomitant]

REACTIONS (2)
  - PROTEIN URINE [None]
  - RENAL FUNCTION TEST ABNORMAL [None]
